FAERS Safety Report 7265773-1 (Version None)
Quarter: 2011Q1

REPORT INFORMATION
  Report Type: 
  Country: None (occurrence: None)
  Receive Date: 20110131
  Receipt Date: 20110124
  Transmission Date: 20110831
  Serious: Yes (Hospitalization)
  Sender: FDA-Public Use
  Company Number: SE-PFIZER INC-2011016187

PATIENT
  Age: 25 Year
  Sex: Female

DRUGS (6)
  1. CALCICHEW-D3 [Concomitant]
     Dosage: UNK
  2. FOLACIN [Concomitant]
     Dosage: 5 MG, UNK
  3. EGAZIL COMP. DURETTER [Concomitant]
     Dosage: 0.2 MG, UNK
  4. LOPERAMIDE [Concomitant]
     Dosage: UNK
  5. LESTID [Concomitant]
     Dosage: 1 G, UNK
  6. SALAZOPYRIN [Suspect]
     Indication: CROHN'S DISEASE
     Dosage: 500 MG, 4X/DAY
     Route: 048
     Dates: start: 20101001, end: 20101105

REACTIONS (10)
  - LYMPHADENOPATHY [None]
  - VOMITING [None]
  - TRANSAMINASES INCREASED [None]
  - LEUKOCYTOSIS [None]
  - PRURITUS [None]
  - DIARRHOEA [None]
  - PYREXIA [None]
  - ABDOMINAL PAIN [None]
  - ATELECTASIS [None]
  - RASH [None]
